FAERS Safety Report 8051457-9 (Version None)
Quarter: 2012Q1

REPORT INFORMATION
  Report Type: 
  Country: None (occurrence: None)
  Receive Date: 20120117
  Receipt Date: 20120109
  Transmission Date: 20120608
  Serious: Yes (Disabling, Other)
  Sender: FDA-Public Use
  Company Number: US-ASTRAZENECA-2012SE01579

PATIENT
  Age: 63 Year
  Sex: Female
  Weight: 72.6 kg

DRUGS (32)
  1. VITAMIN D [Concomitant]
  2. BACTRIM [Concomitant]
     Dosage: 860/150
  3. DIAZEPAM [Concomitant]
  4. AMILORIDE HYDROCHLORIDE [Concomitant]
  5. ITOTROPINE ZOMIDE [Concomitant]
  6. TULERA [Concomitant]
  7. SEROQUEL XR [Suspect]
     Indication: SCHIZOAFFECTIVE DISORDER
     Route: 048
  8. VITAMIN B-12 [Concomitant]
  9. COLAZE [Concomitant]
  10. MULTI-VITAMINS [Concomitant]
  11. REMERON [Concomitant]
  12. FLUTITASONE TROPIONATE [Concomitant]
  13. LEVOTHYROXINE SODIUM [Concomitant]
  14. OMEPRAZOLE [Concomitant]
  15. HYDROCODONE BITARTRATE [Concomitant]
  16. VITAMIN C [Concomitant]
  17. MAGNESIUM HYDROXIDE TAB [Concomitant]
  18. BENADRYL [Concomitant]
  19. LITHIUM CARBONATE [Concomitant]
  20. TEMAZEPAM [Concomitant]
  21. ASPIRIN [Concomitant]
  22. DIAZEPAM [Concomitant]
  23. MAGNESIUM [Concomitant]
  24. DILTIAZEM HCL [Concomitant]
  25. CITALOPRAM HYDROBROMIDE [Concomitant]
  26. CRANBERRY [Concomitant]
  27. AZELASTINE HCL [Concomitant]
  28. TENEFIBER [Concomitant]
  29. CALCIUM [Concomitant]
  30. GEODONE [Concomitant]
  31. AMITRIPTYLINE HCL [Concomitant]
  32. MIZOPILINE [Concomitant]

REACTIONS (1)
  - ROAD TRAFFIC ACCIDENT [None]
